FAERS Safety Report 21019463 (Version 1)
Quarter: 2022Q2

REPORT INFORMATION
  Report Type: Spontaneous
  Country: CA (occurrence: CA)
  Receive Date: 20220628
  Receipt Date: 20220628
  Transmission Date: 20220720
  Serious: No
  Sender: FDA-Public Use
  Company Number: CA-JAZZ-2022-CA-009020

PATIENT
  Age: 10 Year
  Sex: Male

DRUGS (9)
  1. XYREM [Suspect]
     Active Substance: SODIUM OXYBATE
     Indication: Product used for unknown indication
     Dosage: UNK
     Route: 065
  2. VENLAFAXINE [Suspect]
     Active Substance: VENLAFAXINE HYDROCHLORIDE
     Indication: Cataplexy
     Dosage: UNK
  3. CLOMIPRAMINE [Concomitant]
     Active Substance: CLOMIPRAMINE
     Indication: Product used for unknown indication
     Dosage: UNK
  4. METHYLPHENIDATE [Concomitant]
     Active Substance: METHYLPHENIDATE
     Indication: Somnolence
     Dosage: UNK
  5. MODAFINIL [Concomitant]
     Active Substance: MODAFINIL
     Indication: Product used for unknown indication
     Dosage: UNK
  6. PITOLISANT [Concomitant]
     Active Substance: PITOLISANT
     Indication: Product used for unknown indication
     Dosage: UNK
  7. RISPERIDONE [Concomitant]
     Active Substance: RISPERIDONE
     Indication: Product used for unknown indication
     Dosage: UNK
  8. TROPATEPINE HYDROCHLORIDE [Concomitant]
     Active Substance: TROPATEPINE HYDROCHLORIDE
     Indication: Cataplexy
     Dosage: 10 MILLIGRAM, QD
  9. TROPATEPINE HYDROCHLORIDE [Concomitant]
     Active Substance: TROPATEPINE HYDROCHLORIDE
     Dosage: 5 GRAM

REACTIONS (1)
  - Drug ineffective for unapproved indication [Unknown]
